FAERS Safety Report 13238731 (Version 1)
Quarter: 2017Q1

REPORT INFORMATION
  Report Type: Spontaneous
  Country: JP (occurrence: JP)
  Receive Date: 20170216
  Receipt Date: 20170216
  Transmission Date: 20170428
  Serious: Yes (Hospitalization)
  Sender: FDA-Public Use
  Company Number: PHHY2017JP023454

PATIENT
  Age: 71 Year
  Sex: Female

DRUGS (6)
  1. AMINOLEBAN [Concomitant]
     Active Substance: AMINO ACIDS
     Indication: HEPATIC FAILURE
     Dosage: UNK
     Route: 065
  2. YOKUKANSAN [Suspect]
     Active Substance: HERBALS
     Indication: RESTLESSNESS
     Dosage: UNK
     Route: 048
     Dates: end: 20161208
  3. RIVASTACH [Suspect]
     Active Substance: RIVASTIGMINE
     Indication: PARKINSON^S DISEASE
     Dosage: UNK
     Route: 062
     Dates: end: 20161208
  4. ROZEREM [Suspect]
     Active Substance: RAMELTEON
     Indication: INSOMNIA
     Dosage: UNK
     Route: 048
     Dates: end: 20161208
  5. ALEVIATIN [Suspect]
     Active Substance: PHENYTOIN SODIUM
     Indication: SEIZURE
     Dosage: 1 PIECE (250 MG / 5 ML)
     Route: 042
     Dates: start: 20161208, end: 20161212
  6. MEVALOTIN [Suspect]
     Active Substance: PRAVASTATIN SODIUM
     Indication: HYPERLIPIDAEMIA
     Dosage: UNK
     Route: 048
     Dates: end: 20161208

REACTIONS (4)
  - Rhabdomyolysis [Recovered/Resolved]
  - Hyperammonaemia [Recovered/Resolved]
  - Hyponatraemia [Recovered/Resolved]
  - Off label use [Unknown]

NARRATIVE: CASE EVENT DATE: 20161208
